FAERS Safety Report 10052125 (Version 1)
Quarter: 2014Q2

REPORT INFORMATION
  Report Type: Spontaneous
  Country: US (occurrence: US)
  Receive Date: 20140402
  Receipt Date: 20140402
  Transmission Date: 20141212
  Serious: Yes (Other)
  Sender: FDA-Public Use
  Company Number: US-AMGEN-USASP2014022384

PATIENT
  Age: 64 Year
  Sex: Female

DRUGS (6)
  1. PROLIA [Suspect]
     Indication: SENILE OSTEOPOROSIS
     Dosage: UNK UNK, Q6MO
     Route: 065
     Dates: start: 20121010
  2. SYNTHROID [Concomitant]
  3. ATORVASTATIN [Concomitant]
  4. CALCIUM [Concomitant]
  5. VITAMIN D                          /00107901/ [Concomitant]
  6. PROVENTIL                          /00139501/ [Concomitant]
     Dosage: UNK UNK, AS NECESSARY

REACTIONS (1)
  - Wrist fracture [Unknown]
